FAERS Safety Report 15015868 (Version 1)
Quarter: 2018Q2

REPORT INFORMATION
  Report Type: Spontaneous
  Country: PL (occurrence: PL)
  Receive Date: 20180615
  Receipt Date: 20180615
  Transmission Date: 20180711
  Serious: Yes (Hospitalization)
  Sender: FDA-Public Use
  Company Number: PL-AUROBINDO-AUR-APL-2018-027953

PATIENT
  Age: 48 Year
  Sex: Female

DRUGS (30)
  1. RAMIPRIL. [Suspect]
     Active Substance: RAMIPRIL
     Dosage: UNK ()
     Route: 048
  2. METOPROLOL. [Suspect]
     Active Substance: METOPROLOL
     Route: 048
  3. METOPROLOL. [Suspect]
     Active Substance: METOPROLOL
     Dosage: 25 MG, 1X PER DAY, MORNING
  4. LACIDIPINE [Suspect]
     Active Substance: LACIDIPINE
     Dosage: ()
     Route: 048
  5. CAPTOPRIL. [Suspect]
     Active Substance: CAPTOPRIL
     Indication: HYPERTENSIVE CRISIS
     Dosage: 25 MG, SINGLE DOSE
     Route: 060
  6. RAMIPRIL. [Suspect]
     Active Substance: RAMIPRIL
     Dosage: ()
     Route: 048
  7. RAMIPRIL. [Suspect]
     Active Substance: RAMIPRIL
     Dosage: 5 MG, 1X PER DAY, EVENING
     Route: 048
  8. INDAPAMIDE. [Suspect]
     Active Substance: INDAPAMIDE
     Indication: PRODUCT USED FOR UNKNOWN INDICATION
     Dosage: 5 MILLIGRAM, DAILY, IN EVENING
     Route: 065
  9. INDAPAMIDE. [Suspect]
     Active Substance: INDAPAMIDE
     Dosage: 1.5 MG, 1X PER DAY, MORNING
  10. INDAPAMIDE. [Suspect]
     Active Substance: INDAPAMIDE
     Route: 065
  11. INDAPAMIDE. [Suspect]
     Active Substance: INDAPAMIDE
     Route: 065
  12. RAMIPRIL. [Suspect]
     Active Substance: RAMIPRIL
     Indication: PRODUCT USED FOR UNKNOWN INDICATION
     Dosage: UNK
     Route: 048
  13. INDAPAMIDE. [Suspect]
     Active Substance: INDAPAMIDE
     Dosage: 1.5 MG, 1X PER DAY, MORNING
  14. INDAPAMIDE. [Suspect]
     Active Substance: INDAPAMIDE
     Route: 048
  15. FUROSEMIDE. [Concomitant]
     Active Substance: FUROSEMIDE
     Indication: HYPERTENSIVE CRISIS
     Dosage: UNK
  16. RAMIPRIL. [Suspect]
     Active Substance: RAMIPRIL
     Route: 048
  17. LACIDIPINE [Suspect]
     Active Substance: LACIDIPINE
     Indication: HYPERTENSION
     Dosage: EVENING
     Route: 048
  18. LACIDIPINE [Suspect]
     Active Substance: LACIDIPINE
     Route: 048
  19. LACIDIPINE [Suspect]
     Active Substance: LACIDIPINE
     Dosage: INCREASE IN THE EVENING DOSE TO 4 MG
     Route: 048
  20. RAMIPRIL. [Suspect]
     Active Substance: RAMIPRIL
     Dosage: ()
     Route: 048
  21. LACIDIPINE [Suspect]
     Active Substance: LACIDIPINE
     Indication: PRODUCT USED FOR UNKNOWN INDICATION
     Dosage: 4 MILLIGRAM, EVENING
     Route: 048
  22. INDAPAMIDE. [Suspect]
     Active Substance: INDAPAMIDE
     Route: 048
  23. RAMIPRIL. [Suspect]
     Active Substance: RAMIPRIL
     Indication: HYPERTENSION
     Dosage: 5 MG, 1X PER DAY, EVENING
     Route: 048
  24. METOPROLOL. [Suspect]
     Active Substance: METOPROLOL
     Indication: PRODUCT USED FOR UNKNOWN INDICATION
     Dosage: 25 MILLIGRAM, DAILY, IN MORNING
     Route: 048
  25. INDAPAMIDE. [Suspect]
     Active Substance: INDAPAMIDE
     Indication: HYPERTENSION
     Dosage: 5 MILLIGRAM, ONCE A DAY, IN EVENING
     Route: 048
  26. CAPTOPRIL. [Suspect]
     Active Substance: CAPTOPRIL
     Dosage: 25 MG, SINGLE DOSE
     Route: 060
  27. URAPIDIL [Concomitant]
     Active Substance: URAPIDIL
     Indication: HYPERTENSIVE CRISIS
  28. RAMIPRIL. [Suspect]
     Active Substance: RAMIPRIL
     Dosage: UNK ()
     Route: 048
  29. METOPROLOL. [Suspect]
     Active Substance: METOPROLOL
     Indication: HYPERTENSION
     Dosage: 25 MG, 1X PER DAY, MORNING
  30. INDAPAMIDE. [Suspect]
     Active Substance: INDAPAMIDE
     Route: 065

REACTIONS (8)
  - Treatment noncompliance [Unknown]
  - Treatment failure [Unknown]
  - Drug dose omission [Unknown]
  - Drug ineffective [Unknown]
  - Malaise [Unknown]
  - Blood pressure increased [Unknown]
  - Blood pressure fluctuation [Unknown]
  - Blood pressure decreased [Unknown]
